FAERS Safety Report 6706220-5 (Version None)
Quarter: 2010Q2

REPORT INFORMATION
  Report Type: 
  Country: None (occurrence: None)
  Receive Date: 20100430
  Receipt Date: 20100430
  Transmission Date: 20101027
  Serious: Yes (Hospitalization)
  Sender: FDA-Public Use
  Company Number: None

PATIENT
  Sex: Male
  Weight: 99 kg

DRUGS (1)
  1. CYTARABINE [Suspect]
     Dosage: 37620 MG
     Dates: end: 20081006

REACTIONS (5)
  - FUNGAL INFECTION [None]
  - IMPLANT SITE PAIN [None]
  - NAUSEA [None]
  - PULMONARY NECROSIS [None]
  - PULMONARY OEDEMA [None]
